FAERS Safety Report 9790176 (Version 4)
Quarter: 2014Q1

REPORT INFORMATION
  Report Type: Spontaneous
  Country: US (occurrence: US)
  Receive Date: 20131231
  Receipt Date: 20140113
  Transmission Date: 20141002
  Serious: Yes (Death, Hospitalization)
  Sender: FDA-Public Use
  Company Number: US-JNJFOC-20131215517

PATIENT
  Age: 74 Year
  Sex: Female
  Weight: 68.04 kg

DRUGS (4)
  1. XARELTO [Suspect]
     Indication: CEREBROVASCULAR ACCIDENT PROPHYLAXIS
     Route: 048
     Dates: start: 20130321, end: 20131223
  2. XARELTO [Suspect]
     Indication: ATRIAL FIBRILLATION
     Route: 048
     Dates: start: 20130321, end: 20131223
  3. PLAVIX [Suspect]
     Indication: STENT PLACEMENT
     Route: 048
  4. ASPIRIN [Suspect]
     Indication: STENT PLACEMENT
     Route: 048
     Dates: start: 20130321

REACTIONS (1)
  - Cerebral haemorrhage [Fatal]
